FAERS Safety Report 8144558-8 (Version None)
Quarter: 2012Q1

REPORT INFORMATION
  Report Type: 
  Country: None (occurrence: None)
  Receive Date: 20120217
  Receipt Date: 20120208
  Transmission Date: 20120608
  Serious: Yes (Other)
  Sender: FDA-Public Use
  Company Number: CA-JNJFOC-20110103632

PATIENT
  Sex: Female
  Weight: 86 kg

DRUGS (2)
  1. REMICADE [Suspect]
     Indication: CROHN'S DISEASE
     Dosage: DOSE STRENGTH 100MG/VIAL. INFUSION STARTED AT 12.30
     Route: 042
     Dates: end: 20110301
  2. GRAVOL TAB [Concomitant]
     Indication: PREMEDICATION
     Route: 065

REACTIONS (8)
  - CROHN'S DISEASE [None]
  - ERYTHEMA [None]
  - FLUSHING [None]
  - NAUSEA [None]
  - DIZZINESS [None]
  - INFUSION RELATED REACTION [None]
  - THROAT TIGHTNESS [None]
  - BODY TEMPERATURE INCREASED [None]
